FAERS Safety Report 5563998-4 (Version None)
Quarter: 2007Q4

REPORT INFORMATION
  Report Type: 
  Country: None (occurrence: None)
  Receive Date: 20071217
  Receipt Date: 20071205
  Transmission Date: 20080405
  Serious: Yes (Other)
  Sender: FDA-Public Use
  Company Number: JP-PFIZER INC-2007102661

PATIENT
  Age: 39 Year
  Sex: Male

DRUGS (2)
  1. HALCION [Suspect]
     Dosage: DAILY DOSE:.25MG-FREQ:DAILY
     Route: 048
     Dates: start: 20071115, end: 20070101
  2. DRUG, UNSPECIFIED [Concomitant]

REACTIONS (4)
  - BLOOD CHOLESTEROL INCREASED [None]
  - BLOOD TRIGLYCERIDES INCREASED [None]
  - GAMMA-GLUTAMYLTRANSFERASE INCREASED [None]
  - MALAISE [None]
